FAERS Safety Report 8563345 (Version 2)
Quarter: 2012Q4

REPORT INFORMATION
  Report Type: 
  Country: US (occurrence: US)
  Receive Date: 20120515
  Receipt Date: 20121015
  Transmission Date: 20130627
  Serious: Yes (Other)
  Sender: FDA-Public Use
  Company Number: US-BAYER-2012-046797

PATIENT
  Age: 26 Year
  Sex: Female
  Weight: 97.96 kg

DRUGS (5)
  1. YASMIN [Suspect]
     Indication: CONTRACEPTION
     Dosage: UNK
     Dates: start: 200205, end: 200412
  2. LEVOTHYROXINE [Concomitant]
     Indication: HYPOTHYROIDISM
     Dosage: 25 mcg, UNK
  3. ZITHROMAX [Concomitant]
     Dosage: 250 mg, UNK
  4. CEFUROXIME AXETIL [Concomitant]
     Dosage: 250 mg, UNK
  5. ZOLOFT [Concomitant]
     Dosage: 50 mg, UNK

REACTIONS (7)
  - Gallbladder injury [None]
  - Cholecystitis chronic [None]
  - Injury [None]
  - Pain [None]
  - General physical health deterioration [None]
  - Anxiety [None]
  - Emotional distress [None]
